FAERS Safety Report 15656121 (Version 1)
Quarter: 2018Q4

REPORT INFORMATION
  Report Type: Report from Study
  Country: US (occurrence: US)
  Receive Date: 20181126
  Receipt Date: 20181126
  Transmission Date: 20190205
  Serious: Yes (Hospitalization)
  Sender: FDA-Public Use
  Company Number: US-PFIZER INC-2018475248

PATIENT
  Age: 63 Year
  Sex: Male
  Weight: 114.9 kg

DRUGS (14)
  1. PALBOCICLIB [Suspect]
     Active Substance: PALBOCICLIB
     Dosage: 125 MG, CYCLIC (DAILY)
     Dates: start: 20181105, end: 20181105
  2. CISPLATIN. [Suspect]
     Active Substance: CISPLATIN
     Dosage: 60 MG/M2/DOSE, MONTHLY
     Dates: start: 20181105
  3. PRINIVIL [Concomitant]
     Active Substance: LISINOPRIL
     Dosage: UNK, QDAY
     Route: 048
  4. NIFEDIPINE. [Concomitant]
     Active Substance: NIFEDIPINE
  5. CHLORTHALIDONE. [Concomitant]
     Active Substance: CHLORTHALIDONE
     Dosage: UNK, DAILY
     Route: 048
  6. CLONIDINE. [Concomitant]
     Active Substance: CLONIDINE
     Dosage: 0.3 MG, UNK
  7. LABETALOL [Concomitant]
     Active Substance: LABETALOL\LABETALOL HYDROCHLORIDE
     Dosage: 1 DF, 3X/DAY
     Route: 048
  8. VITAMIN D3 [Concomitant]
     Active Substance: CHOLECALCIFEROL
  9. ZETIA [Concomitant]
     Active Substance: EZETIMIBE
     Dosage: 10 MG, QDAY
     Route: 048
  10. HYDRALAZINE [Concomitant]
     Active Substance: HYDRALAZINE HYDROCHLORIDE
     Dosage: 100 MG, TID
  11. INSULIN ASPART [Concomitant]
     Active Substance: INSULIN ASPART
     Dosage: AC BRKFST, SLIDING SCALE FOR BG MORE THAN 150
     Route: 058
  12. ELIQUIS [Concomitant]
     Active Substance: APIXABAN
     Dosage: 1 DF, 2X/DAY
     Route: 048
  13. PROCHLORPERAZINE. [Concomitant]
     Active Substance: PROCHLORPERAZINE
     Dosage: 10 MG, Q6HR
     Route: 048
  14. NIACIN. [Concomitant]
     Active Substance: NIACIN
     Dosage: 500 MG, QPM
     Route: 048

REACTIONS (2)
  - Hypotension [Recovering/Resolving]
  - Blood creatinine increased [Not Recovered/Not Resolved]
